FAERS Safety Report 8836428 (Version 3)
Quarter: 2012Q4

REPORT INFORMATION
  Report Type: 
  Country: US (occurrence: US)
  Receive Date: 20121011
  Receipt Date: 20121101
  Transmission Date: 20130627
  Serious: No
  Sender: FDA-Public Use
  Company Number: US-ASTRAZENECA-2012SE75843

PATIENT
  Age: 43 Year
  Sex: Male

DRUGS (4)
  1. SYMBICORT PMDI [Suspect]
     Route: 055
  2. NEXIUM [Suspect]
     Route: 048
  3. TOPROL XL [Suspect]
     Indication: HYPERTENSION
     Route: 048
  4. CRESTOR [Suspect]
     Route: 048

REACTIONS (3)
  - Hypertension [Unknown]
  - Feeling abnormal [Unknown]
  - Drug dose omission [Unknown]
